FAERS Safety Report 8998222 (Version 1)
Quarter: 2013Q1

REPORT INFORMATION
  Report Type: Spontaneous
  Country: US (occurrence: US)
  Receive Date: 20130104
  Receipt Date: 20130104
  Transmission Date: 20140127
  Serious: No
  Sender: FDA-Public Use
  Company Number: US-VERTEX PHARMACEUTICALS INC.-2013-000101

PATIENT
  Age: 63 Year
  Sex: Male
  Weight: 88 kg

DRUGS (7)
  1. INCIVEK [Suspect]
     Indication: HEPATITIS C
     Dosage: 750 MG, TID
     Route: 048
     Dates: start: 20121228, end: 20130101
  2. RIBAVIRIN [Suspect]
     Indication: HEPATITIS C
     Dosage: 600 MG, BID
     Route: 048
     Dates: start: 20121123
  3. PEGASYS [Suspect]
     Indication: HEPATITIS C
     Dosage: 180 ?G, WEEKLY
     Dates: start: 20121123
  4. LISINOPRIL [Concomitant]
     Dosage: 40 MG, QD
  5. HYDROCHLOROTHIAZIDE [Concomitant]
     Dosage: 25 MG, QD
  6. XANAX [Concomitant]
  7. PRAVASTATIN [Concomitant]
     Dosage: 20 MG, QD

REACTIONS (7)
  - Dyspnoea [Recovered/Resolved]
  - Headache [Recovered/Resolved]
  - Blood pressure increased [Recovered/Resolved]
  - Arthralgia [Unknown]
  - Malaise [Unknown]
  - Anxiety [Unknown]
  - Anorectal discomfort [Recovered/Resolved]
